FAERS Safety Report 4344317-8 (Version None)
Quarter: 2004Q2

REPORT INFORMATION
  Report Type: 
  Country: None (occurrence: None)
  Receive Date: 20040422
  Receipt Date: 20040412
  Transmission Date: 20050107
  Serious: Yes (Other)
  Sender: FDA-Public Use
  Company Number: DE-BRISTOL-MYERS SQUIBB COMPANY-12558011

PATIENT
  Age: 19 Year

DRUGS (2)
  1. METHOTREXATE [Suspect]
     Indication: NON-HODGKIN'S LYMPHOMA
     Route: 037
     Dates: start: 19940601
  2. CYTARABINE [Suspect]
     Indication: NON-HODGKIN'S LYMPHOMA
     Route: 037
     Dates: start: 19940601

REACTIONS (2)
  - RENAL FAILURE [None]
  - TUMOUR LYSIS SYNDROME [None]
